FAERS Safety Report 6169244-5 (Version None)
Quarter: 2009Q2

REPORT INFORMATION
  Report Type: 
  Country: None (occurrence: None)
  Receive Date: 20090424
  Receipt Date: 20090415
  Transmission Date: 20091009
  Serious: Yes (Hospitalization)
  Sender: FDA-Public Use
  Company Number: 234184K09USA

PATIENT
  Age: 62 Year
  Sex: Female
  Weight: 60 kg

DRUGS (8)
  1. REBIF [Suspect]
     Indication: MULTIPLE SCLEROSIS
     Dosage: 44 MCG, 3 IN 1 WEEKS, SUBCUTANEOUS
     Route: 058
     Dates: start: 20040415
  2. ASPIRIN [Concomitant]
  3. CARVEDILOL [Concomitant]
  4. FOSAMAX [Concomitant]
  5. VESSCARE (SOLIFENACIN) [Concomitant]
  6. MACROBID [Concomitant]
  7. PLAVIX [Concomitant]
  8. SIMVASTATIN [Concomitant]

REACTIONS (2)
  - EJECTION FRACTION DECREASED [None]
  - FATIGUE [None]
